FAERS Safety Report 16970389 (Version 1)
Quarter: 2019Q4

REPORT INFORMATION
  Report Type: Spontaneous
  Country: CZ (occurrence: CZ)
  Receive Date: 20191029
  Receipt Date: 20191029
  Transmission Date: 20200122
  Serious: Yes (Life-Threatening)
  Sender: FDA-Public Use
  Company Number: CZ-ASTRAZENECA-2019SF51927

PATIENT
  Age: 54 Year
  Sex: Male
  Weight: 125 kg

DRUGS (1)
  1. ROSUCARD [Suspect]
     Active Substance: ROSUVASTATIN CALCIUM
     Indication: HYPERCHOLESTEROLAEMIA
     Dosage: THE DOSAGE: 0-0-1
     Route: 048
     Dates: start: 20190826, end: 20191003

REACTIONS (3)
  - Tension headache [Recovering/Resolving]
  - Sleep disorder [Recovering/Resolving]
  - Erectile dysfunction [Not Recovered/Not Resolved]

NARRATIVE: CASE EVENT DATE: 20190828
